FAERS Safety Report 5403845-4 (Version None)
Quarter: 2007Q3

REPORT INFORMATION
  Report Type: 
  Country: None (occurrence: None)
  Receive Date: 20070802
  Receipt Date: 20070727
  Transmission Date: 20080115
  Serious: Yes (Disabling)
  Sender: FDA-Public Use
  Company Number: SE-AVENTIS-200716825GDDC

PATIENT
  Sex: Female

DRUGS (2)
  1. TAXOTERE [Suspect]
     Dosage: DOSE: UNK
     Route: 042
  2. HERCEPTIN [Suspect]
     Dosage: DOSE: UNK

REACTIONS (4)
  - ABASIA [None]
  - GASTROINTESTINAL MOTILITY DISORDER [None]
  - NERVOUS SYSTEM DISORDER [None]
  - URINARY RETENTION [None]
